FAERS Safety Report 11451700 (Version 1)
Quarter: 2015Q3

REPORT INFORMATION
  Report Type: Spontaneous
  Country: US (occurrence: US)
  Receive Date: 20150903
  Receipt Date: 20150903
  Transmission Date: 20151125
  Serious: Yes (Other)
  Sender: FDA-Public Use
  Company Number: US-COREPHARMA LLC-2015COR00181

PATIENT

DRUGS (1)
  1. RIMANTADINE [Suspect]
     Active Substance: RIMANTADINE HYDROCHLORIDE

REACTIONS (1)
  - Psychotic disorder [Unknown]
